FAERS Safety Report 18325472 (Version 7)
Quarter: 2021Q4

REPORT INFORMATION
  Report Type: Spontaneous
  Country: US (occurrence: US)
  Receive Date: 20200929
  Receipt Date: 20211130
  Transmission Date: 20220304
  Serious: Yes (Hospitalization, Other)
  Sender: FDA-Public Use
  Company Number: US-PFIZER INC-2020337233

PATIENT
  Age: 59 Year
  Sex: Female

DRUGS (2)
  1. XELJANZ [Suspect]
     Active Substance: TOFACITINIB CITRATE
     Indication: Rheumatoid arthritis
     Dosage: 5 MG, 2X/DAY
     Route: 048
     Dates: start: 202005
  2. METHOTREXATE [Concomitant]
     Active Substance: METHOTREXATE
     Dosage: UNK

REACTIONS (20)
  - Atrial fibrillation [Not Recovered/Not Resolved]
  - Chest pain [Unknown]
  - Dizziness [Unknown]
  - Heart rate increased [Unknown]
  - Hypertension [Unknown]
  - Product dose omission in error [Unknown]
  - Depressed mood [Unknown]
  - Pain in extremity [Unknown]
  - Memory impairment [Unknown]
  - Skin infection [Unknown]
  - Acne [Unknown]
  - Illness [Unknown]
  - Wheezing [Unknown]
  - Chills [Unknown]
  - Irritability [Recovering/Resolving]
  - Movement disorder [Recovering/Resolving]
  - Joint stiffness [Unknown]
  - Limb discomfort [Unknown]
  - Fall [Unknown]
  - Red blood cell sedimentation rate decreased [Unknown]

NARRATIVE: CASE EVENT DATE: 20200101
